FAERS Safety Report 11655558 (Version 1)
Quarter: 2015Q4

REPORT INFORMATION
  Report Type: Spontaneous
  Country: US (occurrence: US)
  Receive Date: 20151023
  Receipt Date: 20151023
  Transmission Date: 20160304
  Serious: Yes (Hospitalization, Other)
  Sender: FDA-Public Use
  Company Number: US-BAYER-2015-446550

PATIENT
  Sex: Female

DRUGS (2)
  1. CIPRO [Suspect]
     Active Substance: CIPROFLOXACIN HYDROCHLORIDE
     Dosage: UNK
  2. LEVOFLOXACIN. [Concomitant]
     Active Substance: LEVOFLOXACIN

REACTIONS (13)
  - Osteoarthritis [None]
  - Tremor [None]
  - Musculoskeletal stiffness [None]
  - Muscle spasms [None]
  - Loss of control of legs [None]
  - Pain [None]
  - Migraine [None]
  - Urinary tract infection [None]
  - Upper respiratory tract infection [None]
  - Head titubation [None]
  - Arthralgia [None]
  - Head injury [None]
  - Asthenia [None]
